FAERS Safety Report 4300770-7 (Version None)
Quarter: 2004Q1

REPORT INFORMATION
  Report Type: 
  Country: None (occurrence: None)
  Receive Date: 20040218
  Receipt Date: 20040204
  Transmission Date: 20041129
  Serious: Yes (Hospitalization)
  Sender: FDA-Public Use
  Company Number: US-JNJFOC-20031101324

PATIENT
  Age: 70 Year
  Sex: Female
  Weight: 88.905 kg

DRUGS (3)
  1. REMICADE [Suspect]
     Indication: RHEUMATOID ARTHRITIS
     Dosage: 5 MG/KG, 1 IN 4 WEEK, INTRAVENOUS
     Route: 042
     Dates: start: 20010724, end: 20030616
  2. METHOTREXATE [Concomitant]
  3. PREDNISONE [Concomitant]

REACTIONS (3)
  - ATYPICAL MYCOBACTERIAL INFECTION [None]
  - GRANULOMA [None]
  - NECROSIS [None]
